FAERS Safety Report 9126438 (Version 1)
Quarter: 2013Q1

REPORT INFORMATION
  Report Type: Report from Study
  Country: CA (occurrence: CA)
  Receive Date: 20130117
  Receipt Date: 20130117
  Transmission Date: 20140127
  Serious: Yes (Other)
  Sender: FDA-Public Use
  Company Number: CA-JNJFOC-20130105324

PATIENT
  Age: 55 None
  Sex: Male
  Weight: 90.9 kg

DRUGS (10)
  1. REMICADE [Suspect]
     Indication: CROHN^S DISEASE
     Dosage: FREQUENCY ONCE 4-6 WEEKS
     Route: 042
     Dates: start: 200707
  2. DEXAMETHASONE [Concomitant]
     Route: 065
  3. IMURAN [Concomitant]
     Route: 065
  4. ASA [Concomitant]
     Route: 065
  5. PLAVIX [Concomitant]
     Route: 065
  6. RAMIPRIL [Concomitant]
     Route: 065
  7. SURMONTIL [Concomitant]
     Route: 065
  8. SALOFALK [Concomitant]
     Route: 065
  9. LIPITOR [Concomitant]
     Route: 065
  10. AN UNKNOWN MEDICATION [Concomitant]
     Route: 065

REACTIONS (2)
  - Angioplasty [Recovered/Resolved]
  - Post procedural haemorrhage [Recovering/Resolving]
